FAERS Safety Report 8420745-6 (Version None)
Quarter: 2012Q2

REPORT INFORMATION
  Report Type: 
  Country: None (occurrence: None)
  Receive Date: 20120608
  Receipt Date: 20120604
  Transmission Date: 20120825
  Serious: No
  Sender: FDA-Public Use
  Company Number: US-PFIZER INC-2012134964

PATIENT
  Sex: Male
  Weight: 100 kg

DRUGS (6)
  1. LASIX [Concomitant]
     Indication: CARDIAC OPERATION
     Dosage: HALF A TABLET, DAILY
     Route: 048
  2. TOVIAZ [Suspect]
     Indication: BLADDER DISORDER
     Dosage: 8 MG,DAILY
     Dates: start: 20120501
  3. OMEPRAZOLE [Concomitant]
     Indication: GASTROOESOPHAGEAL REFLUX DISEASE
     Dosage: 20 MG,DAILY
  4. ALLOPURINOL [Concomitant]
     Dosage: UNK
  5. METOPROLOL [Concomitant]
     Indication: CARDIAC OPERATION
     Dosage: 50 MG IN MORNING AND HALF A TABLET OF 50MG AT NIGHT,2X/DAY
     Route: 048
  6. AMOXICILLIN [Concomitant]
     Indication: ROSACEA
     Dosage: 500 MG,DAILY

REACTIONS (1)
  - DRUG INEFFECTIVE [None]
